FAERS Safety Report 19036632 (Version 1)
Quarter: 2021Q1

REPORT INFORMATION
  Report Type: Spontaneous
  Country: US (occurrence: US)
  Receive Date: 20210320
  Receipt Date: 20210320
  Transmission Date: 20210420
  Serious: No
  Sender: FDA-Public Use
  Company Number: None

PATIENT
  Age: 27 Year
  Sex: Female

DRUGS (1)
  1. MONTELUKAST [Suspect]
     Active Substance: MONTELUKAST SODIUM
     Indication: ALLERGY PROPHYLAXIS
     Route: 048
     Dates: start: 20210315

REACTIONS (1)
  - Fatigue [None]

NARRATIVE: CASE EVENT DATE: 20210319
